FAERS Safety Report 6212344-1 (Version None)
Quarter: 2009Q2

REPORT INFORMATION
  Report Type: 
  Country: None (occurrence: None)
  Receive Date: 20090529
  Receipt Date: 20090525
  Transmission Date: 20091009
  Serious: Yes (Death, Hospitalization, Other)
  Sender: FDA-Public Use
  Company Number: CERZ-1000648

PATIENT
  Age: 8 Year
  Sex: Female
  Weight: 21 kg

DRUGS (2)
  1. CEREZYME [Suspect]
     Indication: GAUCHER'S DISEASE
     Dosage: 60 U/KG, Q2W, INTRAVENOUS ; 30 U/KG, Q2W, INTRAVENOUS
     Route: 042
     Dates: end: 20081101
  2. CEREZYME [Suspect]
     Indication: GAUCHER'S DISEASE
     Dosage: 60 U/KG, Q2W, INTRAVENOUS ; 30 U/KG, Q2W, INTRAVENOUS
     Route: 042
     Dates: start: 20020311

REACTIONS (9)
  - ABDOMINAL DISTENSION [None]
  - ANAEMIA [None]
  - CACHEXIA [None]
  - DISEASE PROGRESSION [None]
  - GAUCHER'S DISEASE [None]
  - HEPATOSPLENOMEGALY [None]
  - PALLOR [None]
  - PLATELET COUNT DECREASED [None]
  - WHITE BLOOD CELL COUNT DECREASED [None]
